FAERS Safety Report 7172695-3 (Version None)
Quarter: 2010Q4

REPORT INFORMATION
  Report Type: 
  Country: None (occurrence: None)
  Receive Date: 20101217
  Receipt Date: 20101214
  Transmission Date: 20110411
  Serious: Yes (Hospitalization, Other)
  Sender: FDA-Public Use
  Company Number: US-AMGEN-USASP2010005325

PATIENT

DRUGS (15)
  1. NPLATE [Suspect]
     Indication: IDIOPATHIC THROMBOCYTOPENIC PURPURA
     Dosage: 12 A?G/KG, QWK
     Dates: start: 20100513, end: 20101212
  2. IVIGLOB-EX [Concomitant]
     Indication: IDIOPATHIC THROMBOCYTOPENIC PURPURA
     Dosage: 30 G, UNK
     Dates: start: 20100618
  3. IVIGLOB-EX [Concomitant]
     Dosage: 30 G, UNK
     Dates: start: 20100712
  4. IVIGLOB-EX [Concomitant]
     Dosage: 30 G, UNK
     Dates: start: 20100726
  5. IVIGLOB-EX [Concomitant]
     Dosage: 30 UNK, UNK
     Dates: start: 20100823
  6. IVIGLOB-EX [Concomitant]
     Dosage: 30 G, UNK
     Dates: start: 20100830
  7. IVIGLOB-EX [Concomitant]
     Dosage: 30 G, UNK
     Dates: start: 20100913
  8. IVIGLOB-EX [Concomitant]
     Dosage: 30 G, UNK
     Dates: start: 20101008
  9. IVIGLOB-EX [Concomitant]
     Dosage: 30 G, UNK
     Dates: start: 20101014
  10. IVIGLOB-EX [Concomitant]
     Dosage: 30 G, UNK
     Dates: start: 20101022
  11. IVIGLOB-EX [Concomitant]
     Dosage: 30 G, UNK
     Dates: start: 20101102
  12. IVIGLOB-EX [Concomitant]
     Dosage: 30 G, UNK
     Dates: start: 20101129
  13. IVIGLOB-EX [Concomitant]
     Dosage: 30 G, UNK
     Dates: start: 20100513
  14. IVIGLOB-EX [Concomitant]
     Dosage: 30 G, UNK
     Dates: start: 20100816
  15. WHOLE BLOOD [Concomitant]
     Indication: IDIOPATHIC THROMBOCYTOPENIC PURPURA

REACTIONS (3)
  - DRUG INEFFECTIVE [None]
  - PLATELET COUNT DECREASED [None]
  - THERAPEUTIC RESPONSE DECREASED [None]
